FAERS Safety Report 16191976 (Version 1)
Quarter: 2019Q2

REPORT INFORMATION
  Report Type: Spontaneous
  Country: ES (occurrence: ES)
  Receive Date: 20190412
  Receipt Date: 20190412
  Transmission Date: 20190711
  Serious: Yes (Other)
  Sender: FDA-Public Use
  Company Number: ES-MYLANLABS-2019M1035118

PATIENT
  Age: 63 Year
  Sex: Female

DRUGS (1)
  1. SECALIP [Suspect]
     Active Substance: FENOFIBRATE
     Indication: PRODUCT USED FOR UNKNOWN INDICATION
     Dosage: UNK
     Route: 048
     Dates: start: 20181018, end: 20181219

REACTIONS (2)
  - Hypertransaminasaemia [Recovered/Resolved]
  - Blood lactate dehydrogenase increased [Recovered/Resolved]

NARRATIVE: CASE EVENT DATE: 20181218
